FAERS Safety Report 19847500 (Version 1)
Quarter: 2021Q3

REPORT INFORMATION
  Report Type: Spontaneous
  Country: GB (occurrence: GB)
  Receive Date: 20210917
  Receipt Date: 20210917
  Transmission Date: 20211014
  Serious: Yes (Life-Threatening, Hospitalization)
  Sender: FDA-Public Use
  Company Number: GB-PFIZER INC-202101153098

PATIENT
  Age: 64 Year
  Sex: Male

DRUGS (12)
  1. INDAPAMIDE. [Suspect]
     Active Substance: INDAPAMIDE
     Indication: CARDIAC FAILURE CHRONIC
     Dosage: 2.5 MG, 1X/DAY  (OD (ONCE DAILY))
     Route: 048
     Dates: start: 202104
  2. COCODAMOL [Concomitant]
     Active Substance: ACETAMINOPHEN\CODEINE PHOSPHATE
     Dosage: UNK
  3. ALLOPURINOL. [Concomitant]
     Active Substance: ALLOPURINOL
     Dosage: UNK
  4. APIXABAN [Concomitant]
     Active Substance: APIXABAN
     Dosage: UNK
  5. FUROSEMIDE. [Suspect]
     Active Substance: FUROSEMIDE
     Indication: CARDIAC FAILURE CHRONIC
     Dosage: 40 MG, 1X/DAY (OD (ONCE DAILY))
     Route: 048
     Dates: start: 20191001
  6. DIGOXIN. [Suspect]
     Active Substance: DIGOXIN
     Indication: ATRIAL FIBRILLATION
     Dosage: 125 UG, UNK
     Route: 048
     Dates: start: 201908
  7. BISOPROLOL [Concomitant]
     Active Substance: BISOPROLOL
     Dosage: UNK
  8. COLCHICINE. [Concomitant]
     Active Substance: COLCHICINE
     Dosage: UNK
  9. PERINDOPRIL ERBUMINE. [Concomitant]
     Active Substance: PERINDOPRIL ERBUMINE
     Dosage: UNK
  10. OMEPRAZOLE. [Concomitant]
     Active Substance: OMEPRAZOLE
     Dosage: UNK
  11. SPIRONOLACTONE. [Suspect]
     Active Substance: SPIRONOLACTONE
     Indication: HYPERALDOSTERONISM
     Dosage: 50 MG, 1X/DAY  (OD (ONCE DAILY))
     Dates: start: 201307, end: 202106
  12. SANDO K [POTASSIUM BICARBONATE;POTASSIUM CHLORIDE] [Concomitant]
     Active Substance: POTASSIUM BICARBONATE\POTASSIUM CHLORIDE
     Dosage: UNK

REACTIONS (5)
  - Product prescribing issue [Unknown]
  - Toxicity to various agents [Not Recovered/Not Resolved]
  - Bradycardia [Unknown]
  - Cardiac arrest [Not Recovered/Not Resolved]
  - Hypokalaemia [Not Recovered/Not Resolved]

NARRATIVE: CASE EVENT DATE: 202107
